FAERS Safety Report 18712129 (Version 1)
Quarter: 2021Q1

REPORT INFORMATION
  Report Type: Spontaneous
  Country: US (occurrence: US)
  Receive Date: 20210107
  Receipt Date: 20210107
  Transmission Date: 20210419
  Serious: Yes (Other)
  Sender: FDA-Public Use
  Company Number: US-SLATE RUN PHARMACEUTICALS-20US000367

PATIENT

DRUGS (1)
  1. VANCOMYCIN HYDROCHLORIDE USP [Suspect]
     Active Substance: VANCOMYCIN HYDROCHLORIDE
     Indication: OSTEOMYELITIS
     Route: 042

REACTIONS (7)
  - Nephropathy toxic [Unknown]
  - Nephrosclerosis [Unknown]
  - Renal tubular atrophy [Unknown]
  - Vertigo [Unknown]
  - Renal tubular necrosis [Unknown]
  - Kidney fibrosis [Unknown]
  - Drug level increased [Unknown]
